FAERS Safety Report 5654865-6 (Version None)
Quarter: 2008Q1

REPORT INFORMATION
  Report Type: 
  Country: None (occurrence: None)
  Receive Date: 20080307
  Receipt Date: 20070816
  Transmission Date: 20080703
  Serious: No
  Sender: FDA-Public Use
  Company Number: A0671173A

PATIENT
  Age: 70 Year
  Sex: Male

DRUGS (3)
  1. REQUIP [Suspect]
     Indication: PARKINSON'S DISEASE
     Route: 048
     Dates: start: 20070625
  2. KLONOPIN [Concomitant]
  3. ZOCOR [Concomitant]

REACTIONS (3)
  - FATIGUE [None]
  - INSOMNIA [None]
  - TREMOR [None]
